FAERS Safety Report 12976707 (Version 5)
Quarter: 2017Q4

REPORT INFORMATION
  Report Type: Report from Study
  Country: CN (occurrence: CN)
  Receive Date: 20161128
  Receipt Date: 20171208
  Transmission Date: 20180320
  Serious: Yes (Hospitalization, Other)
  Sender: FDA-Public Use
  Company Number: PHHY2016CN159304

PATIENT
  Age: 49 Year
  Sex: Male
  Weight: 70 kg

DRUGS (77)
  1. MYFORTIC [Suspect]
     Active Substance: MYCOPHENOLATE SODIUM
     Dosage: 2160 MG, QD
     Route: 065
     Dates: start: 20161020, end: 20161228
  2. BASILIXIMAB [Suspect]
     Active Substance: BASILIXIMAB
     Dosage: 20 MG, QD
     Route: 065
     Dates: start: 20161004, end: 20161004
  3. PREDNISONE. [Suspect]
     Active Substance: PREDNISONE
     Indication: PRODUCT USED FOR UNKNOWN INDICATION
     Dosage: 30 MG, QD
     Route: 065
     Dates: start: 20161003, end: 20161003
  4. PREDNISONE. [Suspect]
     Active Substance: PREDNISONE
     Dosage: 35 MG, QD
     Route: 065
     Dates: start: 20161020, end: 20170125
  5. TACROLIMUS. [Suspect]
     Active Substance: TACROLIMUS
     Dosage: 8 MG, QD
     Route: 065
     Dates: start: 20161011, end: 20161012
  6. TACROLIMUS. [Suspect]
     Active Substance: TACROLIMUS
     Dosage: 8 MG, QD
     Route: 065
     Dates: start: 20161020, end: 20170111
  7. CALCIUM GLUCONATE. [Concomitant]
     Active Substance: CALCIUM GLUCONATE
     Dosage: 10 ML, TID
     Route: 042
     Dates: start: 20161006, end: 20161006
  8. CEFOXITIN [Concomitant]
     Active Substance: CEFOXITIN SODIUM
     Dosage: 2 G, TID
     Route: 042
     Dates: start: 20160930, end: 20160930
  9. GANCICLOVIR. [Concomitant]
     Active Substance: GANCICLOVIR
     Dosage: 0.25 G, Q12H
     Route: 065
  10. PANTOPRAZOLE SODIUM. [Concomitant]
     Active Substance: PANTOPRAZOLE SODIUM
     Indication: GASTRITIS PROPHYLAXIS
     Dosage: 40 MG, TID
     Route: 042
     Dates: start: 20160930, end: 20160930
  11. SODIUM BICARBONATE. [Concomitant]
     Active Substance: SODIUM BICARBONATE
     Indication: HYPERCHLORHYDRIA
     Dosage: 0.5 G, TID
     Route: 048
     Dates: start: 20161011
  12. SODIUM LACTATE. [Concomitant]
     Active Substance: SODIUM LACTATE
     Dosage: 500 ML, BID
     Route: 042
     Dates: start: 20161006, end: 20161006
  13. MYFORTIC [Suspect]
     Active Substance: MYCOPHENOLATE SODIUM
     Indication: RENAL TRANSPLANT
     Dosage: 1440 MG, QD
     Route: 065
     Dates: start: 20160930, end: 20160930
  14. BASILIXIMAB [Suspect]
     Active Substance: BASILIXIMAB
     Indication: RENAL TRANSPLANT
     Dosage: 20 MG, QD
     Route: 065
     Dates: start: 20160929, end: 20160929
  15. METHYLPREDNISOLONE. [Suspect]
     Active Substance: METHYLPREDNISOLONE
     Dosage: 50 MG, QD
     Route: 065
     Dates: start: 20161007, end: 20161007
  16. METHYLPREDNISOLONE. [Suspect]
     Active Substance: METHYLPREDNISOLONE
     Dosage: 40 MG, QD
     Route: 065
     Dates: start: 20170506, end: 20170528
  17. PREDNISONE. [Suspect]
     Active Substance: PREDNISONE
     Dosage: 30 MG, QD
     Route: 065
     Dates: start: 20161004, end: 20161019
  18. TACROLIMUS. [Suspect]
     Active Substance: TACROLIMUS
     Dosage: 9 MG, QD
     Route: 065
     Dates: start: 20161006, end: 20161006
  19. TACROLIMUS. [Suspect]
     Active Substance: TACROLIMUS
     Dosage: 4 MG, QD
     Route: 065
     Dates: start: 20170112, end: 20170118
  20. CALCIUM GLUCONATE. [Concomitant]
     Active Substance: CALCIUM GLUCONATE
     Indication: PRODUCT USED FOR UNKNOWN INDICATION
     Dosage: 10 ML, QD
     Route: 042
     Dates: start: 20161001, end: 20161012
  21. HEPARIN SODIUM. [Concomitant]
     Active Substance: HEPARIN SODIUM
     Indication: PRODUCT USED FOR UNKNOWN INDICATION
     Dosage: 25000 IU, QD
     Route: 042
     Dates: start: 20160930, end: 20160930
  22. POTASSIUM CHLORIDE. [Concomitant]
     Active Substance: POTASSIUM CHLORIDE
     Indication: PRODUCT USED FOR UNKNOWN INDICATION
     Dosage: 1 G, TID
     Route: 048
     Dates: start: 20161004
  23. ROCURONIUM BROMIDE. [Concomitant]
     Active Substance: ROCURONIUM BROMIDE
     Indication: ANAESTHESIA
     Dosage: 100 MG, QD
     Route: 042
     Dates: start: 20160930, end: 20160930
  24. SODIUM LACTATE. [Concomitant]
     Active Substance: SODIUM LACTATE
     Dosage: 500 ML, 2 TIMES
     Route: 042
     Dates: start: 20161001, end: 20161001
  25. MYFORTIC [Suspect]
     Active Substance: MYCOPHENOLATE SODIUM
     Dosage: 1440 MG, QD
     Route: 065
     Dates: start: 20161001, end: 20161008
  26. MYFORTIC [Suspect]
     Active Substance: MYCOPHENOLATE SODIUM
     Dosage: 1080 MG, UNK
     Route: 048
     Dates: start: 20161027, end: 20170603
  27. PREDNISONE. [Suspect]
     Active Substance: PREDNISONE
     Dosage: 17 MG, QD
     Route: 065
     Dates: start: 20170330
  28. CEFOXITIN [Concomitant]
     Active Substance: CEFOXITIN SODIUM
     Indication: INFECTION PROPHYLAXIS
     Dosage: 2 G, QD
     Route: 042
     Dates: start: 20160929, end: 20160929
  29. CEFUROXIME AXETIL. [Concomitant]
     Active Substance: CEFUROXIME AXETIL
     Indication: INFECTION PROPHYLAXIS
     Dosage: 0.25 G, BID
     Route: 048
     Dates: start: 20161013, end: 20161013
  30. INSULIN [Concomitant]
     Active Substance: INSULIN NOS
     Indication: BLOOD GLUCOSE INCREASED
     Dosage: 6 U, 11 TIMES/D
     Route: 042
     Dates: start: 20160930, end: 20160930
  31. PANTOPRAZOLE SODIUM. [Concomitant]
     Active Substance: PANTOPRAZOLE SODIUM
     Dosage: 40 MG, BID
     Route: 042
     Dates: start: 20161001
  32. SODIUM LACTATE. [Concomitant]
     Active Substance: SODIUM LACTATE
     Dosage: 500 ML, BID
     Route: 042
     Dates: start: 20161004, end: 20161004
  33. SULFADIAZINE. [Concomitant]
     Active Substance: SULFADIAZINE
     Indication: INFECTION PROPHYLAXIS
     Dosage: 0.96 G, BID
     Route: 048
     Dates: start: 20161013, end: 20161013
  34. MYFORTIC [Suspect]
     Active Substance: MYCOPHENOLATE SODIUM
     Dosage: 1440 MG, QD
     Route: 065
     Dates: start: 20161010, end: 20161019
  35. TACROLIMUS. [Suspect]
     Active Substance: TACROLIMUS
     Indication: PRODUCT USED FOR UNKNOWN INDICATION
     Dosage: 7 MG, QD
     Route: 065
     Dates: start: 20160930, end: 20160930
  36. TACROLIMUS. [Suspect]
     Active Substance: TACROLIMUS
     Dosage: 7 MG, QD
     Route: 065
     Dates: start: 20161001, end: 20161005
  37. TACROLIMUS. [Suspect]
     Active Substance: TACROLIMUS
     Dosage: 8 MG, QD
     Route: 065
     Dates: start: 20161007, end: 20161007
  38. TACROLIMUS. [Suspect]
     Active Substance: TACROLIMUS
     Dosage: 11 MG, QD
     Route: 065
     Dates: start: 20161013, end: 20161019
  39. CEFOXITIN SODIUM [Concomitant]
     Active Substance: CEFOXITIN SODIUM
     Indication: INFECTION PROPHYLAXIS
     Dosage: 2 G, QD
     Route: 065
     Dates: start: 20160929, end: 20160929
  40. CALCIUM CHLORIDE. [Concomitant]
     Active Substance: CALCIUM CHLORIDE
     Indication: PRODUCT USED FOR UNKNOWN INDICATION
     Dosage: 20 ML, QD
     Route: 042
     Dates: start: 20160930, end: 20160930
  41. GANCICLOVIR. [Concomitant]
     Active Substance: GANCICLOVIR
     Indication: PROPHYLAXIS
     Dosage: 0.5 G, BID
     Route: 048
     Dates: start: 20161013, end: 20161013
  42. GLYCERIN. [Concomitant]
     Active Substance: GLYCERIN
     Indication: CONSTIPATION
     Dosage: 110 ML, QD
     Route: 061
     Dates: start: 20160929, end: 20160929
  43. NICARDIPINE HYDROCHLORIDE. [Concomitant]
     Active Substance: NICARDIPINE HYDROCHLORIDE
     Indication: BLOOD PRESSURE INCREASED
     Dosage: 40 MG, BID
     Route: 048
     Dates: start: 20161008
  44. NIFEDIPINE. [Concomitant]
     Active Substance: NIFEDIPINE
     Indication: BLOOD PRESSURE INCREASED
     Dosage: 30 MG, BID
     Route: 048
     Dates: start: 20161002
  45. SODIUM LACTATE. [Concomitant]
     Active Substance: SODIUM LACTATE
     Dosage: 500 ML, 5 TIMES
     Route: 042
     Dates: start: 20160930, end: 20160930
  46. TROPISETRON HYDROCHLORIDE [Concomitant]
     Active Substance: TROPISETRON HYDROCHLORIDE
     Indication: ANAESTHESIA
     Dosage: 15 MG, QD
     Route: 042
     Dates: start: 20160930, end: 20160930
  47. MYFORTIC [Suspect]
     Active Substance: MYCOPHENOLATE SODIUM
     Dosage: 360 MG, QD
     Route: 065
     Dates: start: 20161229, end: 20170111
  48. MYFORTIC [Suspect]
     Active Substance: MYCOPHENOLATE SODIUM
     Dosage: 1080 MG, QD
     Route: 065
     Dates: start: 20170126
  49. MYFORTIC [Suspect]
     Active Substance: MYCOPHENOLATE SODIUM
     Dosage: 360 MG, UNK
     Route: 048
     Dates: start: 20170604
  50. METHYLPREDNISOLONE. [Suspect]
     Active Substance: METHYLPREDNISOLONE
     Indication: PRODUCT USED FOR UNKNOWN INDICATION
     Dosage: 50 MG, QD
     Route: 065
     Dates: start: 20160930, end: 20160930
  51. METHYLPREDNISOLONE. [Suspect]
     Active Substance: METHYLPREDNISOLONE
     Dosage: 50 MG, QD
     Route: 065
     Dates: start: 20161001, end: 20161002
  52. TACROLIMUS. [Suspect]
     Active Substance: TACROLIMUS
     Dosage: 1 MG, QD
     Route: 065
     Dates: start: 20170119, end: 20170125
  53. CALCIUM GLUCONATE. [Concomitant]
     Active Substance: CALCIUM GLUCONATE
     Dosage: 30 ML, BID
     Route: 042
     Dates: start: 20161009, end: 20161009
  54. FENTANYL CITRATE. [Concomitant]
     Active Substance: FENTANYL CITRATE
     Indication: ANAESTHESIA
     Dosage: 100 UG, QD
     Route: 042
     Dates: start: 20160930, end: 20160930
  55. FUROSEMIDE. [Concomitant]
     Active Substance: FUROSEMIDE
     Indication: POLYURIA
     Dosage: 80 MG, QD
     Route: 042
     Dates: start: 20160930, end: 20160930
  56. GENTAMYCIN SULFATE [Concomitant]
     Active Substance: GENTAMICIN SULFATE
     Indication: PROPHYLAXIS
     Dosage: 16 IU, QD
     Route: 042
     Dates: start: 20160930, end: 20160930
  57. METOPROLOL TARTRATE. [Concomitant]
     Active Substance: METOPROLOL TARTRATE
     Indication: BLOOD PRESSURE INCREASED
     Dosage: 25 MG, QD
     Route: 048
     Dates: start: 20161002, end: 20161002
  58. PROPOFOL. [Concomitant]
     Active Substance: PROPOFOL
     Indication: ANAESTHESIA
     Dosage: 0.2 G, QD
     Route: 042
     Dates: start: 20160930, end: 20160930
  59. REMIFENTANIL HYDROCHLORIDE. [Concomitant]
     Active Substance: REMIFENTANIL HYDROCHLORIDE
     Indication: ANAESTHESIA
     Dosage: 2 MG, QD
     Route: 042
     Dates: start: 20160930, end: 20160930
  60. SODIUM BICARBONATE. [Concomitant]
     Active Substance: SODIUM BICARBONATE
     Dosage: 125 ML, QD
     Route: 042
     Dates: start: 20161011, end: 20161011
  61. MYFORTIC [Suspect]
     Active Substance: MYCOPHENOLATE SODIUM
     Dosage: 1080 MG, QD
     Route: 065
     Dates: start: 20170112, end: 20170125
  62. TACROLIMUS. [Suspect]
     Active Substance: TACROLIMUS
     Dosage: 8.5 MG, QD
     Route: 065
     Dates: start: 20161008, end: 20161010
  63. TACROLIMUS. [Suspect]
     Active Substance: TACROLIMUS
     Dosage: 4 MG, QD
     Route: 065
     Dates: start: 20170116, end: 20170329
  64. INSULIN [Concomitant]
     Active Substance: INSULIN NOS
     Dosage: 6 U, 4TIMES/D
     Route: 042
     Dates: start: 20160930, end: 20160930
  65. MANNITOL. [Concomitant]
     Active Substance: MANNITOL
     Indication: POLYURIA
     Dosage: 250 ML, QD
     Route: 042
     Dates: start: 20160930, end: 20160930
  66. SODIUM BICARBONATE. [Concomitant]
     Active Substance: SODIUM BICARBONATE
     Indication: HYPERCHLORHYDRIA
     Dosage: 250 ML, QD
     Route: 042
     Dates: start: 20160930, end: 20160930
  67. SODIUM LACTATE. [Concomitant]
     Active Substance: SODIUM LACTATE
     Indication: PRODUCT USED FOR UNKNOWN INDICATION
     Dosage: 500 ML, 12 TIMES
     Route: 042
     Dates: start: 20160930, end: 20160930
  68. MYFORTIC [Suspect]
     Active Substance: MYCOPHENOLATE SODIUM
     Dosage: 2340 MG, QD
     Route: 065
     Dates: start: 20161009, end: 20161009
  69. TACROLIMUS. [Suspect]
     Active Substance: TACROLIMUS
     Dosage: 6 MG, QD
     Route: 065
     Dates: start: 20170330
  70. ATROPINE SULFATE. [Concomitant]
     Active Substance: ATROPINE SULFATE
     Indication: PRODUCT USED FOR UNKNOWN INDICATION
     Dosage: 2 MG, QD
     Route: 058
     Dates: start: 20160930, end: 20160930
  71. INSULIN [Concomitant]
     Active Substance: INSULIN NOS
     Dosage: 6 U, 7TIMES/D
     Route: 042
     Dates: start: 20161001, end: 20161001
  72. LIDOCAINE HYDROCHLORIDE. [Concomitant]
     Active Substance: LIDOCAINE HYDROCHLORIDE
     Indication: ANAESTHESIA
     Dosage: 5 ML, QD
     Route: 042
     Dates: start: 20160930, end: 20160930
  73. SODIUM LACTATE. [Concomitant]
     Active Substance: SODIUM LACTATE
     Dosage: 500 ML, QD
     Route: 042
     Dates: start: 20161007, end: 20161007
  74. TRAMADOL HYDROCHLORIDE. [Concomitant]
     Active Substance: TRAMADOL HYDROCHLORIDE
     Indication: PAIN
     Dosage: 0.1 G, QD
     Route: 042
     Dates: start: 20160930, end: 20160930
  75. PREDNISONE. [Suspect]
     Active Substance: PREDNISONE
     Dosage: 21 MG, QD
     Route: 065
     Dates: start: 20160126, end: 20170329
  76. CEFOPERAZONE + SULBACTAM [Concomitant]
     Indication: INFECTION PROPHYLAXIS
     Dosage: 3 G, BID
     Route: 042
     Dates: start: 20161001
  77. POTASSIUM CHLORIDE. [Concomitant]
     Active Substance: POTASSIUM CHLORIDE
     Indication: PRODUCT USED FOR UNKNOWN INDICATION
     Dosage: 10 ML, QD
     Route: 042
     Dates: start: 20161001, end: 20161001

REACTIONS (16)
  - Hypocalcaemia [Recovering/Resolving]
  - Chest discomfort [Recovered/Resolved]
  - Pyrexia [Recovered/Resolved]
  - Blood albumin decreased [Unknown]
  - Low density lipoprotein increased [Unknown]
  - Lymphocyte count decreased [Unknown]
  - Red blood cells urine positive [Unknown]
  - Dyspnoea [Recovered/Resolved]
  - Platelet count decreased [Unknown]
  - Pneumocystis jirovecii pneumonia [Recovered/Resolved]
  - Cytomegalovirus infection [Recovered/Resolved]
  - Haemoglobin decreased [Unknown]
  - Blood glucose increased [Unknown]
  - Overdose [Unknown]
  - Bilirubin conjugated increased [Unknown]
  - Protein urine present [Unknown]

NARRATIVE: CASE EVENT DATE: 20161003
